FAERS Safety Report 8600024-4 (Version None)
Quarter: 2012Q3

REPORT INFORMATION
  Report Type: 
  Country: None (occurrence: None)
  Receive Date: 20120816
  Receipt Date: 20120806
  Transmission Date: 20120928
  Serious: Yes (Other)
  Sender: FDA-Public Use
  Company Number: CHPA2012US017718

PATIENT
  Age: 74 Year
  Sex: Male

DRUGS (3)
  1. DRUG THERAPY NOS [Concomitant]
     Dosage: UNK, UNK
  2. EXCEDRIN EXTRA STRENGTH CAPLETS [Suspect]
     Indication: HEADACHE
     Dosage: 2 DF, TID
     Route: 048
     Dates: start: 19450101
  3. ANTIHYPERTENSIVES [Concomitant]
     Dosage: UNK, UNK

REACTIONS (4)
  - ARTERIAL OCCLUSIVE DISEASE [None]
  - INCORRECT DOSE ADMINISTERED [None]
  - INCORRECT DRUG ADMINISTRATION DURATION [None]
  - OVERDOSE [None]
